FAERS Safety Report 8597034-2 (Version None)
Quarter: 2012Q3

REPORT INFORMATION
  Report Type: 
  Country: None (occurrence: None)
  Receive Date: 20120816
  Receipt Date: 20120810
  Transmission Date: 20120928
  Serious: Yes (Other)
  Sender: FDA-Public Use
  Company Number: US-AMGEN-USASP2012050590

PATIENT
  Sex: Male

DRUGS (2)
  1. VECTIBIX [Suspect]
     Indication: COLORECTAL CANCER METASTATIC
     Dosage: 400 MG, UNK
     Dates: start: 20120601
  2. LEUKOVORIN [Concomitant]

REACTIONS (1)
  - EMOTIONAL DISTRESS [None]
